FAERS Safety Report 19300685 (Version 1)
Quarter: 2021Q2

REPORT INFORMATION
  Report Type: Spontaneous
  Country: CA (occurrence: CA)
  Receive Date: 20210525
  Receipt Date: 20210525
  Transmission Date: 20210717
  Serious: Yes (Hospitalization)
  Sender: FDA-Public Use
  Company Number: CA-TEVA-2021-CA-1913744

PATIENT
  Age: 90 Year
  Sex: Male

DRUGS (6)
  1. MYCOPHENOLATE MOFETIL. [Concomitant]
     Active Substance: MYCOPHENOLATE MOFETIL
  2. ASPIRIN. [Concomitant]
     Active Substance: ASPIRIN
  3. QUETIAPINE. [Suspect]
     Active Substance: QUETIAPINE
     Indication: INSOMNIA
     Route: 048
  4. TACROLIMUS. [Suspect]
     Active Substance: TACROLIMUS
     Indication: RENAL TRANSPLANT
     Route: 065
  5. PANTOPRAZOLE [Concomitant]
     Active Substance: PANTOPRAZOLE
  6. PRAVASTATIN SODIUM. [Concomitant]
     Active Substance: PRAVASTATIN SODIUM

REACTIONS (5)
  - Coma scale abnormal [Unknown]
  - Unresponsive to stimuli [Unknown]
  - Pyelonephritis [Unknown]
  - Sedation [Unknown]
  - Escherichia bacteraemia [Unknown]
